FAERS Safety Report 7815575-X (Version None)
Quarter: 2011Q4

REPORT INFORMATION
  Report Type: 
  Country: None (occurrence: None)
  Receive Date: 20111012
  Receipt Date: 20110929
  Transmission Date: 20120403
  Serious: No
  Sender: FDA-Public Use
  Company Number: OMPQ-NO-1107S-0723

PATIENT
  Age: 66 Year
  Sex: Male

DRUGS (5)
  1. WARFARIN SODIUM [Concomitant]
  2. GASMOTIN (MOSAPRIDE CITRATE) [Concomitant]
  3. SUCRALFATE [Concomitant]
  4. OMNIPAQUE 70 [Suspect]
     Indication: PRODUCT USED FOR UNKNOWN INDICATION
     Dosage: 150 ML, SINGLE DOSE, INTRAVENOUS
     Route: 042
     Dates: start: 20110430, end: 20110430
  5. OMEPRAZOLE [Concomitant]

REACTIONS (2)
  - INJECTION SITE EXTRAVASATION [None]
  - OEDEMA PERIPHERAL [None]
